FAERS Safety Report 25770724 (Version 3)
Quarter: 2025Q4

REPORT INFORMATION
  Report Type: Spontaneous
  Country: US (occurrence: US)
  Receive Date: 20250908
  Receipt Date: 20251103
  Transmission Date: 20260117
  Serious: No
  Sender: CIPLA
  Company Number: US-CIPLA LTD.-2025US10765

PATIENT

DRUGS (3)
  1. ALBUTEROL [Suspect]
     Active Substance: ALBUTEROL
     Indication: Asthma
     Dosage: 180 MICROGRAM, BID (2 PUFFS 2 TIMES A DAY WITH A 8 HOUR MINIMUM GAP ORALLY) REGULAR USER FROM 25 YEA
     Dates: start: 2000
  2. ALBUTEROL [Suspect]
     Active Substance: ALBUTEROL
     Dosage: 180 MICROGRAM, BID (2 PUFFS 2 TIMES A DAY WITH A 8 HOUR MINIMUM GAP ORALLY)
     Dates: start: 202505, end: 202505
  3. ALBUTEROL [Suspect]
     Active Substance: ALBUTEROL
     Dosage: 180 MICROGRAM, BID (2 PUFFS 2 TIMES A DAY WITH A 8 HOUR MINIMUM GAP) (NEW INHALER)
     Dates: start: 202506

REACTIONS (2)
  - Drug dose omission by device [Unknown]
  - Device delivery system issue [Unknown]

NARRATIVE: CASE EVENT DATE: 20250527
